FAERS Safety Report 4333094-2 (Version None)
Quarter: 2004Q2

REPORT INFORMATION
  Report Type: 
  Country: None (occurrence: None)
  Receive Date: 20040402
  Receipt Date: 20040325
  Transmission Date: 20050107
  Serious: Yes (Hospitalization, Disabling, Other)
  Sender: FDA-Public Use
  Company Number: RB-589-2004

PATIENT
  Age: 32 Year
  Sex: Male

DRUGS (3)
  1. BUPRENORPHINE HYDROCHLORIDE [Suspect]
     Indication: DRUG DEPENDENCE
     Dosage: 16 MG IV
     Route: 042
     Dates: start: 19970630
  2. LOPRAZOLAM MESILATE [Concomitant]
  3. PAROXETINE HCL [Concomitant]

REACTIONS (4)
  - FINGER AMPUTATION [None]
  - INTENTIONAL MISUSE [None]
  - NECROSIS ISCHAEMIC [None]
  - PERIPHERAL EMBOLISM [None]
